FAERS Safety Report 8199651-0 (Version None)
Quarter: 2012Q1

REPORT INFORMATION
  Report Type: 
  Country: None (occurrence: None)
  Receive Date: 20120311
  Receipt Date: 20120229
  Transmission Date: 20120608
  Serious: No
  Sender: FDA-Public Use
  Company Number: US-ASTRAZENECA-2011SE34823

PATIENT
  Age: 89 Year
  Sex: Female

DRUGS (3)
  1. TOPROL-XL [Suspect]
     Route: 048
  2. ARICEPT [Concomitant]
  3. ATACAND [Suspect]
     Route: 048

REACTIONS (4)
  - DEMENTIA [None]
  - CONFUSIONAL STATE [None]
  - PARANOIA [None]
  - HALLUCINATION [None]
